FAERS Safety Report 15546029 (Version 1)
Quarter: 2018Q4

REPORT INFORMATION
  Report Type: Spontaneous
  Country: US (occurrence: US)
  Receive Date: 20181023
  Receipt Date: 20181023
  Transmission Date: 20190205
  Serious: Yes (Disabling, Other)
  Sender: FDA-Public Use
  Company Number: None

PATIENT
  Age: 44 Year
  Sex: Male
  Weight: 80.1 kg

DRUGS (6)
  1. VITAMIN D [Concomitant]
     Active Substance: CHOLECALCIFEROL
  2. ENTYVIO [Suspect]
     Active Substance: VEDOLIZUMAB
     Indication: COLITIS ULCERATIVE
     Dosage: ?          OTHER FREQUENCY:EVERY 4 WEEKS;?
     Route: 042
     Dates: start: 20180510, end: 20180814
  3. CALCIUM [Concomitant]
     Active Substance: CALCIUM
  4. OMEPRAZOLE. [Concomitant]
     Active Substance: OMEPRAZOLE
  5. SUCRALFATE. [Concomitant]
     Active Substance: SUCRALFATE
  6. MULTIVITAMIN [Concomitant]
     Active Substance: VITAMINS

REACTIONS (8)
  - Impaired work ability [None]
  - Arthralgia [None]
  - Therapy cessation [None]
  - Muscular weakness [None]
  - Insomnia [None]
  - Lymphadenopathy [None]
  - Lymph node pain [None]
  - Fatigue [None]

NARRATIVE: CASE EVENT DATE: 20180816
